FAERS Safety Report 6771753-2 (Version None)
Quarter: 2010Q2

REPORT INFORMATION
  Report Type: 
  Country: None (occurrence: None)
  Receive Date: 20100616
  Receipt Date: 20090508
  Transmission Date: 20101027
  Serious: No
  Sender: FDA-Public Use
  Company Number: US-ASTRAZENECA-2009UW11878

PATIENT
  Age: 54 Year
  Sex: Male
  Weight: 88.5 kg

DRUGS (3)
  1. ATACAND [Suspect]
     Route: 048
     Dates: start: 20090401
  2. ATACAND [Suspect]
     Route: 048
  3. CLONAZEPAM [Concomitant]

REACTIONS (1)
  - WEIGHT INCREASED [None]
